FAERS Safety Report 24146548 (Version 1)
Quarter: 2024Q3

REPORT INFORMATION
  Report Type: Spontaneous
  Country: US (occurrence: US)
  Receive Date: 20240729
  Receipt Date: 20240729
  Transmission Date: 20241016
  Serious: Yes (Life-Threatening, Hospitalization)
  Sender: ACCORD
  Company Number: US-MLMSERVICE-20240711-PI128830-00050-1

PATIENT
  Age: 18 Year
  Sex: Female

DRUGS (2)
  1. AMLODIPINE [Suspect]
     Active Substance: AMLODIPINE BESYLATE
     Indication: Product used for unknown indication
     Dosage: INGESTING
     Route: 048
  2. ACETAMINOPHEN [Concomitant]
     Active Substance: ACETAMINOPHEN
     Route: 048

REACTIONS (8)
  - Harlequin syndrome [Unknown]
  - Circulatory collapse [Unknown]
  - Vasoplegia syndrome [Recovered/Resolved]
  - Cardiogenic shock [Recovered/Resolved]
  - Overdose [Unknown]
  - Respiratory failure [Unknown]
  - Non-cardiogenic pulmonary oedema [Unknown]
  - Hypoxia [Unknown]
